APPROVED DRUG PRODUCT: METOLAZONE
Active Ingredient: METOLAZONE
Strength: 2.5MG
Dosage Form/Route: TABLET;ORAL
Application: A215184 | Product #001 | TE Code: AB
Applicant: RUBICON RESEARCH LTD
Approved: Aug 20, 2021 | RLD: No | RS: No | Type: RX